FAERS Safety Report 4339303-8 (Version None)
Quarter: 2004Q2

REPORT INFORMATION
  Report Type: 
  Country: None (occurrence: None)
  Receive Date: 20040414
  Receipt Date: 20040414
  Transmission Date: 20050107
  Serious: Yes (Other)
  Sender: FDA-Public Use
  Company Number: None

PATIENT
  Age: 52 Year
  Sex: Female
  Weight: 65.7716 kg

DRUGS (12)
  1. DURAGESIC [Suspect]
     Indication: FIBROMYALGIA
     Dosage: 75 UGH 1 PATCH TRANSDERMAL
     Route: 062
     Dates: start: 20020908, end: 20040413
  2. DURAGESIC [Suspect]
     Indication: IRRITABLE BOWEL SYNDROME
     Dosage: 75 UGH 1 PATCH TRANSDERMAL
     Route: 062
     Dates: start: 20020908, end: 20040413
  3. DURAGESIC [Suspect]
     Indication: FIBROMYALGIA
     Dosage: 75 UGH 1 PATCH TRANSDERMAL
     Route: 062
     Dates: start: 20020908, end: 20040413
  4. DURAGESIC [Suspect]
     Indication: IRRITABLE BOWEL SYNDROME
     Dosage: 75 UGH 1 PATCH TRANSDERMAL
     Route: 062
     Dates: start: 20020908, end: 20040413
  5. DURAGESIC [Suspect]
     Indication: FIBROMYALGIA
     Dosage: 25 UGH 1 PATCH TRANSDERMAL
     Route: 062
     Dates: start: 20040413, end: 20040413
  6. DURAGESIC [Suspect]
     Indication: INTERVERTEBRAL DISC DEGENERATION
     Dosage: 25 UGH 1 PATCH TRANSDERMAL
     Route: 062
     Dates: start: 20040413, end: 20040413
  7. DURAGESIC [Suspect]
     Indication: IRRITABLE BOWEL SYNDROME
     Dosage: 25 UGH 1 PATCH TRANSDERMAL
     Route: 062
     Dates: start: 20040413, end: 20040413
  8. DURAGESIC [Suspect]
     Indication: POSTOPERATIVE ADHESION
     Dosage: 25 UGH 1 PATCH TRANSDERMAL
     Route: 062
     Dates: start: 20040413, end: 20040413
  9. DURAGESIC [Suspect]
     Indication: FIBROMYALGIA
     Dosage: 25 UGH 1 PATCH TRANSDERMAL
     Route: 062
     Dates: start: 20040413, end: 20040413
  10. DURAGESIC [Suspect]
     Indication: INTERVERTEBRAL DISC DEGENERATION
     Dosage: 25 UGH 1 PATCH TRANSDERMAL
     Route: 062
     Dates: start: 20040413, end: 20040413
  11. DURAGESIC [Suspect]
     Indication: IRRITABLE BOWEL SYNDROME
     Dosage: 25 UGH 1 PATCH TRANSDERMAL
     Route: 062
     Dates: start: 20040413, end: 20040413
  12. DURAGESIC [Suspect]
     Indication: POSTOPERATIVE ADHESION
     Dosage: 25 UGH 1 PATCH TRANSDERMAL
     Route: 062
     Dates: start: 20040413, end: 20040413

REACTIONS (4)
  - ACCIDENTAL OVERDOSE [None]
  - DRUG WITHDRAWAL SYNDROME [None]
  - MALAISE [None]
  - PHARMACEUTICAL PRODUCT COMPLAINT [None]
